FAERS Safety Report 9675826 (Version 2)
Quarter: 2013Q4

REPORT INFORMATION
  Report Type: Spontaneous
  Country: US (occurrence: US)
  Receive Date: 20131107
  Receipt Date: 20131205
  Transmission Date: 20140711
  Serious: Yes (Death)
  Sender: FDA-Public Use
  Company Number: US-GLAXOSMITHKLINE-A1048231A

PATIENT
  Age: 75 Year
  Sex: Female

DRUGS (2)
  1. TYKERB [Suspect]
     Indication: BREAST CANCER FEMALE
     Dosage: 3TAB PER DAY
     Route: 048
     Dates: start: 20131026
  2. NO CONCURRENT MEDICATION [Concomitant]

REACTIONS (1)
  - Death [Fatal]
